FAERS Safety Report 6740186-7 (Version None)
Quarter: 2010Q2

REPORT INFORMATION
  Report Type: 
  Country: None (occurrence: None)
  Receive Date: 20100525
  Receipt Date: 20100517
  Transmission Date: 20101027
  Serious: Yes (Other)
  Sender: FDA-Public Use
  Company Number: A0790875A

PATIENT
  Age: 40 Year
  Sex: Male
  Weight: 136.4 kg

DRUGS (1)
  1. AVANDIA [Suspect]
     Dosage: 8MG PER DAY
     Route: 048
     Dates: start: 20060101, end: 20071201

REACTIONS (5)
  - CEREBROVASCULAR ACCIDENT [None]
  - HEART RATE IRREGULAR [None]
  - ISCHAEMIA [None]
  - PENILE SWELLING [None]
  - TRANSIENT ISCHAEMIC ATTACK [None]
